FAERS Safety Report 7929714-3 (Version None)
Quarter: 2011Q4

REPORT INFORMATION
  Report Type: 
  Country: None (occurrence: None)
  Receive Date: 20111121
  Receipt Date: 20111114
  Transmission Date: 20120403
  Serious: Yes (Other)
  Sender: FDA-Public Use
  Company Number: US-JNJFOC-20111106423

PATIENT
  Sex: Female
  Weight: 49.9 kg

DRUGS (1)
  1. LEVAQUIN [Suspect]
     Indication: PROPHYLAXIS
     Route: 048
     Dates: start: 20000502, end: 20110402

REACTIONS (3)
  - HALLUCINATION [None]
  - HYPOTHYROIDISM [None]
  - OEDEMA PERIPHERAL [None]
